FAERS Safety Report 23472631 (Version 1)
Quarter: 2024Q1

REPORT INFORMATION
  Report Type: Spontaneous
  Country: US (occurrence: US)
  Receive Date: 20240202
  Receipt Date: 20240202
  Transmission Date: 20240409
  Serious: Yes (Death, Hospitalization)
  Sender: FDA-Public Use
  Company Number: US-FMCRTG-FMC-2401-000096

PATIENT
  Age: 46 Year
  Sex: Female

DRUGS (21)
  1. DELFLEX [Suspect]
     Active Substance: CALCIUM CHLORIDE\DEXTROSE\MAGNESIUM CHLORIDE\SODIUM CHLORIDE\SODIUM LACTATE
     Indication: End stage renal disease
     Route: 033
  2. ADIPIN [AMLODIPINE] [Concomitant]
     Dosage: 2.5 MG TABLET BY MOUTH EVERY EVENING.
  3. ASPIRIN [Concomitant]
     Active Substance: ASPIRIN
     Dosage: 81 MG TABLET, DELAYED RELEASE, 1 TABLET ORAL ONCE A DAY.
  4. AURYXIA [Concomitant]
     Active Substance: TETRAFERRIC TRICITRATE DECAHYDRATE
     Dosage: 210 MG IRON TABLET, 1 TABLET BY MOUTH 3 TIMES A DAY.
  5. CALCIUM CARBONATE [Concomitant]
     Active Substance: CALCIUM CARBONATE
     Dosage: 400 MG 1 CHEWABLE TABLET BY MOUTH AT BEDTIME.
  6. TETRAFERRIC TRICITRATE DECAHYDRATE [Concomitant]
     Active Substance: TETRAFERRIC TRICITRATE DECAHYDRATE
     Dosage: 210 MG, 2 TABLETS BY MOUTH ONCE A DAY BEFORE MEALS.
  7. FIDAXOMICIN [Concomitant]
     Active Substance: FIDAXOMICIN
     Dosage: 200 MG TABLET, 1 TABLET BY MOUTH ONCE A DAY.
  8. FLUCONAZOLE [Concomitant]
     Active Substance: FLUCONAZOLE
     Dosage: 200 MG TABLET, 1 TABLET BY MOUTH EVERY 48 HOURS.
  9. FLUNISOLIDE [Concomitant]
     Active Substance: FLUNISOLIDE
     Dosage: 25 MCG NASAL SPRAY, 2 PUFFS TWICE A DAY.
  10. LINEZOLID [Concomitant]
     Active Substance: LINEZOLID
     Dosage: 600 MG, 1 TABLET PO BID FOR 3 DAYS THEN 1 TABLET PO FOR 11 DAYS.
  11. Lite touch Insulin Pen [Concomitant]
     Dosage: INSULIN NEEDLE TO INJECT INSULIN 4 TIMES A DAY.
  12. METHOCARBAMOL [Concomitant]
     Active Substance: METHOCARBAMOL
     Dosage: 500 MG TABLET, 1 TABLET 3 TIMES A DAY.
  13. METOPROLOL SUCCINATE [Concomitant]
     Active Substance: METOPROLOL SUCCINATE
     Dosage: ER 100 MG TABLET, EXTENDED RELEASE, 1 TABLET PO ONCE A DAY.
  14. MIRALAX [Concomitant]
     Active Substance: POLYETHYLENE GLYCOL 3350
     Dosage: 17 GM PO ONCE A DAY.
  15. MOUNJARO [Concomitant]
     Active Substance: TIRZEPATIDE
     Dosage: 2.5 MG/0.5 ML SUBCUTANEOUS PEN INJECTOR, INJECT 2.5 MG ONCE A WEEK.
  16. Novolog FlexPen U-100 Insulin aspart [Concomitant]
     Dosage: 100 U/ML S/C, 40 UNITS TID.
  17. OMEPRAZOLE [Concomitant]
     Active Substance: OMEPRAZOLE
     Dosage: 20 MG 1 CAPSULE ONCE A DAY.
  18. ProAir HFA (albuterol sulfate) [Concomitant]
     Dosage: 90 MCG/ACTUATION HFA AEROSOL INHALER, 2 PUFFS AS DIRECTED.
  19. VITAMINS [Concomitant]
     Active Substance: VITAMINS
     Dosage: 800 MCG-12.5 MG-2000-UNIT TABLET, 1 TABLET PO ONCE A DAY.
  20. SODIUM BICARBONATE [Concomitant]
     Active Substance: SODIUM BICARBONATE
     Dosage: 650 MG TABLET, 2 TABLET BY MOUTH TWICE A DAY.
  21. TRIAMCINOLONE ACETONIDE [Concomitant]
     Active Substance: TRIAMCINOLONE ACETONIDE
     Dosage: 0.5% TOPICAL CREAM, APPLY TO AFFECTED AREA TWICE A DAY.

REACTIONS (2)
  - Septic shock [Fatal]
  - Peritonitis [Not Recovered/Not Resolved]
